FAERS Safety Report 9142417 (Version 1)
Quarter: 2013Q1

REPORT INFORMATION
  Report Type: Spontaneous
  Country: US (occurrence: US)
  Receive Date: 20130306
  Receipt Date: 20130306
  Transmission Date: 20140127
  Serious: No
  Sender: FDA-Public Use
  Company Number: US-BIOGENIDEC-2013BI021010

PATIENT
  Sex: Male

DRUGS (3)
  1. AVONEX [Suspect]
     Indication: MULTIPLE SCLEROSIS
     Route: 030
     Dates: start: 19960401, end: 20030423
  2. AVONEX [Suspect]
     Indication: MULTIPLE SCLEROSIS
     Route: 030
     Dates: start: 20060607
  3. AVONEX [Suspect]
     Indication: MULTIPLE SCLEROSIS
     Route: 030
     Dates: start: 20080505

REACTIONS (7)
  - Balance disorder [Unknown]
  - Visual impairment [Recovered/Resolved]
  - Blindness unilateral [Recovered/Resolved]
  - Tremor [Unknown]
  - Stress [Unknown]
  - Injection site induration [Recovered/Resolved]
  - Pain [Unknown]
